FAERS Safety Report 8952538 (Version 1)
Quarter: 2012Q4

REPORT INFORMATION
  Report Type: 
  Country: DK (occurrence: DK)
  Receive Date: 20121205
  Receipt Date: 20121205
  Transmission Date: 20130627
  Serious: Yes (Death)
  Sender: FDA-Public Use
  Company Number: DK-FRI-1000040796

PATIENT
  Age: 34 Year
  Sex: Female
  Weight: 82 kg

DRUGS (10)
  1. ESCITALOPRAM [Suspect]
     Indication: DEPRESSIVE SYMPTOM
     Dosage: 20 mg
     Dates: start: 20080811, end: 20081105
  2. SERTINDOLE [Suspect]
     Indication: SCHIZOPHRENIA, PARANOID TYPE
     Dosage: 4 mg
     Route: 048
     Dates: start: 20080408
  3. SERTINDOLE [Suspect]
     Dosage: 8 mg
     Route: 048
  4. SERTINDOLE [Suspect]
     Dosage: 12 mg
     Route: 048
  5. SERTINDOLE [Suspect]
     Dosage: 16 mg
     Route: 048
  6. SERTINDOLE [Suspect]
     Dosage: 20 mg
     Route: 048
  7. SERTINDOLE [Suspect]
     Dosage: 24 mg
     Route: 048
     Dates: start: 20081001
  8. ZYPREXA [Suspect]
  9. CORODIL [Concomitant]
     Indication: ESSENTIAL HYPERTENSION
     Dosage: 15 mg
     Route: 048
     Dates: start: 200710, end: 20071105
  10. GESTONETTE [Concomitant]
     Indication: CONTRACEPTION
     Dates: end: 20081105

REACTIONS (1)
  - Electrocardiogram QT prolonged [Fatal]
